FAERS Safety Report 18940783 (Version 4)
Quarter: 2021Q2

REPORT INFORMATION
  Report Type: Spontaneous
  Country: DE (occurrence: DE)
  Receive Date: 20210225
  Receipt Date: 20210518
  Transmission Date: 20210717
  Serious: No
  Sender: FDA-Public Use
  Company Number: DE-UCBSA-2021007960

PATIENT

DRUGS (1)
  1. LEGANTO [Suspect]
     Active Substance: ROTIGOTINE
     Indication: PRODUCT USED FOR UNKNOWN INDICATION
     Dosage: 3 MILLIGRAM, ONCE DAILY (QD)

REACTIONS (2)
  - Product adhesion issue [Unknown]
  - Application site erythema [Unknown]
